FAERS Safety Report 24823776 (Version 4)
Quarter: 2025Q2

REPORT INFORMATION
  Report Type: Spontaneous
  Country: JP (occurrence: JP)
  Receive Date: 20250109
  Receipt Date: 20250404
  Transmission Date: 20250716
  Serious: Yes (Death, Other)
  Sender: ABBVIE
  Company Number: JP-ABBVIE-6074388

PATIENT
  Age: 70 Year
  Sex: Male
  Weight: 51 kg

DRUGS (3)
  1. VENCLEXTA [Suspect]
     Active Substance: VENETOCLAX
     Indication: Acute myeloid leukaemia
     Route: 048
     Dates: start: 20230324, end: 20230413
  2. VENCLEXTA [Suspect]
     Active Substance: VENETOCLAX
     Indication: Acute myeloid leukaemia
     Route: 048
     Dates: start: 20230424
  3. AZACITIDINE [Concomitant]
     Active Substance: AZACITIDINE
     Indication: Acute myeloid leukaemia
     Dates: start: 20230324

REACTIONS (9)
  - Blast cells present [Fatal]
  - Febrile neutropenia [Unknown]
  - Platelet count decreased [Recovered/Resolved]
  - Loss of consciousness [Recovering/Resolving]
  - Pneumonia [Unknown]
  - Cerebral infarction [Recovering/Resolving]
  - Acute myeloid leukaemia recurrent [Fatal]
  - Febrile neutropenia [Recovering/Resolving]
  - Tumour marker increased [Fatal]

NARRATIVE: CASE EVENT DATE: 20230401
